FAERS Safety Report 5757060-5 (Version None)
Quarter: 2008Q2

REPORT INFORMATION
  Report Type: 
  Country: None (occurrence: None)
  Receive Date: 20080603
  Receipt Date: 20080527
  Transmission Date: 20081010
  Serious: Yes (Death, Life-Threatening, Hospitalization)
  Sender: FDA-Public Use
  Company Number: B0520946A

PATIENT
  Age: 76 Year
  Sex: Male

DRUGS (4)
  1. CLAVAMOX [Suspect]
     Indication: DRUG USE FOR UNKNOWN INDICATION
     Dosage: 1G TWICE PER DAY
     Route: 048
     Dates: start: 20080217, end: 20080221
  2. METRONIDAZOLE [Suspect]
     Dosage: 500MG TWICE PER DAY
     Route: 048
  3. CLARITHROMYCIN [Suspect]
     Dosage: 500MG TWICE PER DAY
     Route: 048
  4. PROTON PUMP INHIBITOR [Suspect]
     Route: 065

REACTIONS (8)
  - ALANINE AMINOTRANSFERASE INCREASED [None]
  - ASPARTATE AMINOTRANSFERASE INCREASED [None]
  - DEATH [None]
  - GAMMA-GLUTAMYLTRANSFERASE INCREASED [None]
  - HELICOBACTER INFECTION [None]
  - HEPATIC FAILURE [None]
  - HYPERSENSITIVITY [None]
  - RASH [None]
